FAERS Safety Report 24285420 (Version 1)
Quarter: 2024Q3

REPORT INFORMATION
  Report Type: Spontaneous
  Country: US (occurrence: None)
  Receive Date: 20240902
  Receipt Date: 20240902
  Transmission Date: 20241016
  Serious: Yes (Hospitalization)
  Sender: Public
  Company Number: None

PATIENT
  Sex: Female

DRUGS (8)
  1. GAMMAPLEX [Suspect]
     Active Substance: HUMAN IMMUNOGLOBULIN G
     Dosage: 40GM EVERY 2 WEEKS INTRAVENOUS?
     Route: 042
  2. ACETAMINOPHEN [Concomitant]
     Active Substance: ACETAMINOPHEN
  3. NORAML SALINE FLUSH [Concomitant]
  4. SODIUM CHLORIDE [Concomitant]
     Active Substance: SODIUM CHLORIDE
  5. DIPHENHYDRAMINE (ALLERGY) [Concomitant]
  6. EPINEPHRINE [Concomitant]
     Active Substance: EPINEPHRINE
  7. SOLU MEDROL SDV [Concomitant]
  8. XOLAIR PFS [Concomitant]
     Active Substance: OMALIZUMAB

REACTIONS (4)
  - Gastrointestinal disorder [None]
  - Nausea [None]
  - Vomiting [None]
  - Diarrhoea [None]
